FAERS Safety Report 17336286 (Version 1)
Quarter: 2020Q1

REPORT INFORMATION
  Report Type: Spontaneous
  Country: FR (occurrence: FR)
  Receive Date: 20200128
  Receipt Date: 20200128
  Transmission Date: 20200409
  Serious: Yes (Life-Threatening)
  Sender: FDA-Public Use
  Company Number: FR-MYLANLABS-2020M1009282

PATIENT
  Age: 89 Year
  Sex: Female
  Weight: 57 kg

DRUGS (9)
  1. DOLIPRANE [Concomitant]
     Active Substance: ACETAMINOPHEN
     Dosage: UNK
  2. DISCOTRINE [Concomitant]
     Active Substance: NITROGLYCERIN
     Dosage: UNK
     Route: 062
     Dates: end: 20191008
  3. CORDARONE [Suspect]
     Active Substance: AMIODARONE HYDROCHLORIDE
     Indication: PAROXYSMAL ARRHYTHMIA
     Dosage: 1 DOSAGE FORM, QD (5 J SUR 7)
     Route: 048
     Dates: end: 20191014
  4. ESOMEPRAZOLE. [Concomitant]
     Active Substance: ESOMEPRAZOLE MAGNESIUM
     Dosage: UNK
     Route: 048
  5. SERESTA [Concomitant]
     Active Substance: OXAZEPAM
     Dosage: UNK (SI BESOIN)
     Route: 048
  6. FUROSEMIDE. [Suspect]
     Active Substance: FUROSEMIDE
     Indication: CARDIAC FAILURE
     Dosage: 80 MILLIGRAM, QD
     Route: 048
     Dates: end: 20191008
  7. COUMADINE [Concomitant]
     Active Substance: WARFARIN SODIUM
     Dosage: UNK
     Route: 048
  8. ESCITALOPRAM [Suspect]
     Active Substance: ESCITALOPRAM OXALATE
     Indication: PRODUCT USED FOR UNKNOWN INDICATION
     Dosage: 20 MILLIGRAM, QD
     Route: 048
     Dates: end: 20191014
  9. LANTUS [Concomitant]
     Active Substance: INSULIN GLARGINE
     Dosage: 100 UNITES/ML
     Route: 058

REACTIONS (3)
  - Torsade de pointes [Recovered/Resolved]
  - Hypokalaemia [Recovered/Resolved]
  - Electrocardiogram QT prolonged [Recovered/Resolved]

NARRATIVE: CASE EVENT DATE: 20191014
